FAERS Safety Report 6385114-1 (Version None)
Quarter: 2009Q4

REPORT INFORMATION
  Report Type: 
  Country: None (occurrence: None)
  Receive Date: 20091002
  Receipt Date: 20090928
  Transmission Date: 20100525
  Serious: Yes (Hospitalization)
  Sender: FDA-Public Use
  Company Number: US-BRISTOL-MYERS SQUIBB COMPANY-14635726

PATIENT
  Age: 61 Year
  Sex: Male
  Weight: 95 kg

DRUGS (13)
  1. SPRYCEL [Suspect]
     Indication: CHRONIC MYELOID LEUKAEMIA
     Dosage: EVENT OCCURRED IN COURSE 11 (START DATE OF COURSE = 05MAY2009. 1700MG LAST DOSE 21MAY09
     Route: 048
     Dates: start: 20080708, end: 20090521
  2. SPRYCEL [Suspect]
     Indication: CHROMOSOME ANALYSIS ABNORMAL
     Dosage: EVENT OCCURRED IN COURSE 11 (START DATE OF COURSE = 05MAY2009. 1700MG LAST DOSE 21MAY09
     Route: 048
     Dates: start: 20080708, end: 20090521
  3. ALLOPURINOL [Concomitant]
  4. SIMVASTATIN [Concomitant]
  5. TYLENOL (CAPLET) [Concomitant]
  6. TYLENOL [Concomitant]
  7. SPIRONOLACTONE [Concomitant]
  8. LISINOPRIL [Concomitant]
  9. MAGNESIUM HYDROXIDE TAB [Concomitant]
  10. CEFAZOLIN [Concomitant]
  11. ZOFRAN [Concomitant]
  12. TEMAZEPAM [Concomitant]
  13. DARVOCET [Concomitant]

REACTIONS (3)
  - CARDIAC ARREST [None]
  - HYPOKALAEMIA [None]
  - LEFT VENTRICULAR DYSFUNCTION [None]
